FAERS Safety Report 8394939-2 (Version None)
Quarter: 2012Q2

REPORT INFORMATION
  Report Type: 
  Country: None (occurrence: None)
  Receive Date: 20120530
  Receipt Date: 20111006
  Transmission Date: 20120825
  Serious: No
  Sender: FDA-Public Use
  Company Number: US-GLAXOSMITHKLINE-A0948848A

PATIENT
  Age: 16 Year
  Sex: Female
  Weight: 30 kg

DRUGS (14)
  1. FLOLAN [Suspect]
     Indication: PULMONARY ARTERIAL HYPERTENSION
     Dosage: 96NGKM UNKNOWN
     Route: 042
     Dates: start: 20050512
  2. CENTRUM [Concomitant]
  3. REVATIO [Suspect]
     Indication: PRODUCT USED FOR UNKNOWN INDICATION
     Dosage: 15MG FOUR TIMES PER DAY
     Route: 065
  4. POTASSIUM CHLORIDE [Concomitant]
  5. ALBUTEROL [Concomitant]
  6. SYNTHROID [Concomitant]
  7. ENALAPRIL MALEATE [Concomitant]
  8. TRACLEER [Concomitant]
  9. AMBIEN [Concomitant]
  10. ZANTAC [Concomitant]
  11. ZOFRAN [Concomitant]
  12. FUROSEMIDE [Concomitant]
  13. TRAMADOL HCL [Concomitant]
  14. XOPENEX [Concomitant]

REACTIONS (1)
  - HEADACHE [None]
